FAERS Safety Report 8853826 (Version 2)
Quarter: 2012Q4

REPORT INFORMATION
  Report Type: 
  Country: US (occurrence: US)
  Receive Date: 20121022
  Receipt Date: 20121121
  Transmission Date: 20130627
  Serious: No
  Sender: FDA-Public Use
  Company Number: US-PFIZER INC-2012261841

PATIENT
  Age: 67 Year
  Sex: Male

DRUGS (2)
  1. EFFEXOR XR [Suspect]
     Indication: ANXIETY DISORDER
     Dosage: 250 mg, 1x/day
  2. EFFEXOR XR [Suspect]
     Indication: MAJOR DEPRESSION

REACTIONS (1)
  - Semen volume decreased [Unknown]
